APPROVED DRUG PRODUCT: NICODERM CQ
Active Ingredient: NICOTINE
Strength: 14MG/24HR
Dosage Form/Route: FILM, EXTENDED RELEASE;TRANSDERMAL
Application: N020165 | Product #005
Applicant: CHATTEM INC DBA SANOFI CONSUMER HEALTHCARE
Approved: Aug 2, 1996 | RLD: Yes | RS: No | Type: OTC